FAERS Safety Report 5727161-6 (Version None)
Quarter: 2008Q2

REPORT INFORMATION
  Report Type: 
  Country: None (occurrence: None)
  Receive Date: 20080505
  Receipt Date: 20080428
  Transmission Date: 20081010
  Serious: Yes (Life-Threatening)
  Sender: FDA-Public Use
  Company Number: CA-BRISTOL-MYERS SQUIBB COMPANY-14172605

PATIENT
  Age: 54 Year
  Sex: Female

DRUGS (8)
  1. AVAPRO [Suspect]
     Indication: PROPHYLAXIS
     Route: 048
     Dates: start: 20080410, end: 20080410
  2. GLUCOPHAGE [Concomitant]
     Indication: DIABETES MELLITUS
     Route: 048
  3. PREVACID [Concomitant]
     Indication: GASTROINTESTINAL DISORDER
     Route: 048
  4. NAPROXEN [Concomitant]
     Route: 048
  5. IMOVANE [Concomitant]
     Indication: SLEEP DISORDER
     Route: 048
  6. ASPIRIN [Concomitant]
     Indication: CARDIOVASCULAR DISORDER
     Route: 048
  7. VITAMIN B-12 [Concomitant]
     Route: 048
  8. CALTRATE [Concomitant]
     Indication: OSTEOPOROSIS PROPHYLAXIS
     Route: 048

REACTIONS (3)
  - APPARENT DEATH [None]
  - DIARRHOEA [None]
  - VOMITING [None]
